FAERS Safety Report 16300063 (Version 1)
Quarter: 2019Q2

REPORT INFORMATION
  Report Type: Spontaneous
  Country: DK (occurrence: DK)
  Receive Date: 20190510
  Receipt Date: 20190510
  Transmission Date: 20190711
  Serious: Yes (Other)
  Sender: FDA-Public Use
  Company Number: DK-PURDUE PHARMA-GBR-2019-0066341

PATIENT
  Age: 57 Year
  Sex: Male

DRUGS (4)
  1. TRAMADOL. [Concomitant]
     Active Substance: TRAMADOL
     Indication: PAIN
     Dosage: 50 MG, (AS NEEDED, STYRKE: 50 MG. DOSIS: 1 TABLET PN., HOJST 2 GANGE DAGLIGT.)
     Route: 048
     Dates: start: 20161130, end: 20170505
  2. LYRICA [Concomitant]
     Active Substance: PREGABALIN
     Indication: PAIN
     Dosage: 150 MG, DAILY (STYRKE: 75MG OG 25MG)
     Route: 048
     Dates: start: 20170505, end: 20170602
  3. DULOXETINE. [Concomitant]
     Active Substance: DULOXETINE
     Indication: PAIN
     Dosage: UNK, (DOSIS: VARIERENDE DOSIS.STYRE: 30MG OG 60 MG.)
     Route: 048
  4. OXYCODONE HYDROCHLORIDE. [Suspect]
     Active Substance: OXYCODONE HYDROCHLORIDE
     Indication: PAIN
     Dosage: UNK, (STYRKE: 20MG OG OG 10MG.DOSIS: DET VURDERES AT PATIENTENS BRUG ER UHENSIGTSMAESSIGT.)
     Route: 048

REACTIONS (14)
  - Suicidal ideation [Unknown]
  - Cognitive disorder [Unknown]
  - Impaired self-care [Unknown]
  - Fatigue [Unknown]
  - Judgement impaired [Unknown]
  - Drug withdrawal syndrome [Unknown]
  - Memory impairment [Unknown]
  - Mental disorder [Unknown]
  - Depression [Not Recovered/Not Resolved]
  - Drug dependence [Unknown]
  - Insomnia [Unknown]
  - Intentional product misuse [Unknown]
  - Disturbance in attention [Unknown]
  - Depressed mood [Unknown]

NARRATIVE: CASE EVENT DATE: 201707
